FAERS Safety Report 12083836 (Version 1)
Quarter: 2016Q1

REPORT INFORMATION
  Report Type: Spontaneous
  Country: US (occurrence: None)
  Receive Date: 20160216
  Receipt Date: 20160216
  Transmission Date: 20160526
  Serious: Yes (Other)
  Sender: FDA-Public Use
  Company Number: None

PATIENT
  Age: 25 Week
  Sex: Male
  Weight: 1.9 kg

DRUGS (1)
  1. MORPHINE 0.5MG/ML [Suspect]
     Active Substance: MORPHINE
     Indication: PAIN
     Dates: start: 20160204, end: 20160210

REACTIONS (5)
  - Bradycardia [None]
  - Product quality issue [None]
  - Oxygen saturation decreased [None]
  - Drug dispensing error [None]
  - Incorrect dose administered [None]

NARRATIVE: CASE EVENT DATE: 20160204
